FAERS Safety Report 5325154-4 (Version None)
Quarter: 2007Q2

REPORT INFORMATION
  Report Type: 
  Country: None (occurrence: None)
  Receive Date: 20070511
  Receipt Date: 20070511
  Transmission Date: 20071010
  Serious: Yes (Hospitalization)
  Sender: FDA-Public Use
  Company Number: None

PATIENT
  Sex: Female
  Weight: 90 kg

DRUGS (10)
  1. CARBOPLATIN [Suspect]
     Dosage: 520 MG
  2. TAXOL [Suspect]
     Dosage: 350 MG
  3. HYZAR [Concomitant]
  4. BENADRYL [Concomitant]
  5. CIMETIDINE HCL [Concomitant]
  6. DECADRON [Concomitant]
  7. KONOPIN [Concomitant]
  8. MAGNESIUM SULFATE [Concomitant]
  9. RESTORIL [Concomitant]
  10. SENOKOT [Concomitant]

REACTIONS (2)
  - BODY TEMPERATURE INCREASED [None]
  - NEUTROPHIL COUNT DECREASED [None]
